FAERS Safety Report 25441702 (Version 1)
Quarter: 2025Q2

REPORT INFORMATION
  Report Type: Spontaneous
  Country: GB (occurrence: GB)
  Receive Date: 20250616
  Receipt Date: 20250616
  Transmission Date: 20250716
  Serious: Yes (Other)
  Sender: ROCHE
  Company Number: GB-ROCHE-10000313042

PATIENT

DRUGS (1)
  1. OBINUTUZUMAB [Suspect]
     Active Substance: OBINUTUZUMAB
     Indication: Lupus nephritis
     Route: 065

REACTIONS (2)
  - Off label use [Unknown]
  - Thrombocytopenia [Unknown]
